FAERS Safety Report 10167210 (Version 2)
Quarter: 2014Q2

REPORT INFORMATION
  Report Type: Spontaneous
  Country: US (occurrence: None)
  Receive Date: 20140508
  Receipt Date: 20140605
  Transmission Date: 20141212
  Serious: Yes (Other)
  Sender: FDA-Public Use
  Company Number: SYM-2014-20572

PATIENT
  Age: 65 Year
  Sex: Male

DRUGS (2)
  1. BUPROPION HYDROCHLORIDE [Suspect]
     Indication: DEPRESSION
     Route: 048
     Dates: start: 2011, end: 2011
  2. LORAZEPAM (LORAZEPAM) [Concomitant]

REACTIONS (5)
  - Vision blurred [None]
  - Myalgia [None]
  - Cataract [None]
  - Visual impairment [None]
  - Arthralgia [None]
